FAERS Safety Report 8760482 (Version 2)
Quarter: 2012Q4

REPORT INFORMATION
  Report Type: 
  Country: JP (occurrence: JP)
  Receive Date: 20120831
  Receipt Date: 20120831
  Transmission Date: 20130627
  Serious: Yes (Other)
  Sender: FDA-Public Use
  Company Number: PHHY2012JP069404

PATIENT
  Age: 75 Year
  Sex: Male
  Weight: 60 kg

DRUGS (6)
  1. NEORAL [Suspect]
     Indication: ACUTE FEBRILE NEUTROPHILIC DERMATOSIS
     Dosage: 200 mg
     Route: 048
  2. NEORAL [Suspect]
     Dosage: 100 mg
     Route: 048
     Dates: start: 201207
  3. NEORAL [Suspect]
     Dosage: 50 mg
     Route: 048
  4. PREDNISOLONE [Suspect]
     Dosage: 18 mg
     Route: 048
     Dates: start: 201206
  5. PREDNISOLONE [Suspect]
     Dosage: 30 mg
     Route: 048
  6. PREDNISOLONE [Suspect]
     Dosage: 100 mg
     Route: 048

REACTIONS (2)
  - Pneumocystis jiroveci pneumonia [Recovered/Resolved]
  - Renal disorder [Recovering/Resolving]
